FAERS Safety Report 9054701 (Version 1)
Quarter: 2013Q1

REPORT INFORMATION
  Report Type: Spontaneous
  Country: FR (occurrence: FR)
  Receive Date: 20130208
  Receipt Date: 20130208
  Transmission Date: 20140127
  Serious: Yes (Other)
  Sender: FDA-Public Use
  Company Number: FR-UCBSA-077651

PATIENT
  Age: 47 Year
  Sex: Female

DRUGS (3)
  1. VIMPAT [Suspect]
     Indication: EPILEPSY
     Dosage: 100 MG TABLETS, PROGRESSIVE DOSE UPTO  200 MG DAILY
     Route: 048
     Dates: start: 201209, end: 201211
  2. VIMPAT [Suspect]
     Indication: EPILEPSY
     Dosage: DECREASE 50 MG EVERY FOUR DAYS
     Route: 048
     Dates: start: 201211
  3. LAMICTAL [Concomitant]
     Dosage: PROGRESSIVE DOSE UP TO 50 MG IN THE MORNING AND 75 MG AT NIGHT
     Dates: start: 201211

REACTIONS (8)
  - Tremor [Recovering/Resolving]
  - Weight decreased [Recovering/Resolving]
  - Cerebellar ataxia [Recovering/Resolving]
  - Loss of consciousness [Recovering/Resolving]
  - Epilepsy [Recovering/Resolving]
  - Autonomic nervous system imbalance [Recovering/Resolving]
  - Eating disorder [Recovering/Resolving]
  - Depressed mood [Recovering/Resolving]
